FAERS Safety Report 7722054-7 (Version None)
Quarter: 2011Q3

REPORT INFORMATION
  Report Type: 
  Country: None (occurrence: None)
  Receive Date: 20110831
  Receipt Date: 20110823
  Transmission Date: 20111222
  Serious: Yes (Other)
  Sender: FDA-Public Use
  Company Number: US-ABBOTT-11P-163-0849335-00

PATIENT
  Age: 50 Year
  Sex: Female

DRUGS (16)
  1. INHALER SOLUTION [Concomitant]
     Indication: INHALATION THERAPY
  2. HUMIRA [Suspect]
     Indication: PSORIASIS
     Dates: start: 20110708
  3. LOSARTAN POTASSIUM [Concomitant]
     Indication: HYPERTENSION
  4. AMLODIPINE BESYLATE [Concomitant]
     Indication: HYPERTENSION
  5. HYDROCODONE BITARTRATE AND ACETAMINOPHEN [Concomitant]
     Indication: PAIN
     Dosage: 5/500, PRN
  6. AMBIEN [Concomitant]
     Indication: INSOMNIA
     Dosage: AT NIGHT
  7. CYMBALTA [Concomitant]
     Indication: DEPRESSION
  8. MELOXICAM [Concomitant]
     Indication: FIBROMYALGIA
  9. NORMAL INHALER [Concomitant]
     Indication: ASTHMA
  10. MULTIPLE CREAMS [Concomitant]
     Indication: PSORIASIS
  11. ATIVAN [Concomitant]
     Indication: ANXIETY
  12. LASIX [Concomitant]
     Indication: HYPERTENSION
  13. CYMBALTA [Concomitant]
     Indication: FIBROMYALGIA
  14. MIRTAZAPINE [Concomitant]
     Indication: PRODUCT USED FOR UNKNOWN INDICATION
     Dosage: AT BEDTIME
  15. SOMA [Concomitant]
     Indication: PAIN
  16. SINGULAIR [Concomitant]
     Indication: PRODUCT USED FOR UNKNOWN INDICATION

REACTIONS (7)
  - HEPATIC ENZYME INCREASED [None]
  - DRUG INEFFECTIVE [None]
  - PSORIASIS [None]
  - BLOOD CHOLESTEROL INCREASED [None]
  - DEPRESSION [None]
  - DIABETES MELLITUS [None]
  - CARDIAC MURMUR [None]
